FAERS Safety Report 9156259 (Version 1)
Quarter: 2013Q1

REPORT INFORMATION
  Report Type: Spontaneous
  Country: GB (occurrence: GB)
  Receive Date: 20130204
  Receipt Date: 20130204
  Transmission Date: 20140127
  Serious: Yes (Life-Threatening, Hospitalization, Disabling, Other)
  Sender: FDA-Public Use
  Company Number: GB-ELI_LILLY_AND_COMPANY-GB201301007992

PATIENT
  Age: 62 Year
  Sex: Female
  Weight: 75 kg

DRUGS (14)
  1. FLUOXETINE [Suspect]
     Indication: DEPRESSION
     Dosage: 1 DF, UNKNOWN
     Route: 048
     Dates: start: 20130107
  2. FLUOXETINE [Suspect]
     Dosage: 20 MG, UNKNOWN
     Route: 048
     Dates: start: 20130110
  3. OLANZAPINE [Concomitant]
     Dosage: 1 DF, UNKNOWN
  4. CALCEOS [Concomitant]
     Dosage: 1 DF, UNKNOWN
  5. CHLORPHENAMINE [Concomitant]
     Dosage: 1 DF, UNKNOWN
  6. CLOBAZAM [Concomitant]
     Dosage: 1 DF, UNKNOWN
  7. FERROUS FUMERATE [Concomitant]
     Dosage: 1 DF, UNKNOWN
  8. HALOPERIDOL [Concomitant]
     Dosage: 1 DF, UNKNOWN
  9. LEVOTHYROXINE [Concomitant]
     Dosage: 1 DF, UNKNOWN
  10. PARACETAMOL [Concomitant]
     Dosage: 1 DF, UNKNOWN
  11. PHENYOTIN [Concomitant]
     Dosage: 1 DF, UNKNOWN
  12. PROCYCLIDINE [Concomitant]
     Dosage: 1 DF, UNKNOWN
  13. SENNA [Concomitant]
     Dosage: 1 DF, UNKNOWN
  14. TOPIRAMATE [Concomitant]
     Dosage: 1 DF, UNKNOWN

REACTIONS (4)
  - Unresponsive to stimuli [Not Recovered/Not Resolved]
  - Anticonvulsant drug level increased [Not Recovered/Not Resolved]
  - Coma scale abnormal [Unknown]
  - Confusional state [Unknown]
